APPROVED DRUG PRODUCT: MILRINONE LACTATE IN PLASTIC CONTAINER
Active Ingredient: MILRINONE LACTATE
Strength: EQ 20MG BASE/100ML (EQ 0.2MG BASE/ML)
Dosage Form/Route: INJECTABLE;INJECTION
Application: A090038 | Product #001 | TE Code: AP
Applicant: HIKMA FARMACEUTICA (PORTUGAL) SA
Approved: Jan 21, 2010 | RLD: No | RS: No | Type: RX